FAERS Safety Report 11053329 (Version 1)
Quarter: 2015Q2

REPORT INFORMATION
  Report Type: Report from Study
  Country: US (occurrence: US)
  Receive Date: 20150421
  Receipt Date: 20150421
  Transmission Date: 20150821
  Serious: Yes (Death, Hospitalization)
  Sender: FDA-Public Use
  Company Number: US-ACTELION-A-US2013-93197

PATIENT
  Age: 41 Year
  Sex: Male

DRUGS (7)
  1. VELETRI [Suspect]
     Active Substance: EPOPROSTENOL
     Indication: PULMONARY HYPERTENSION
     Dosage: UNK
     Route: 042
     Dates: start: 20150407
  2. RIOCIGUAT [Suspect]
     Active Substance: RIOCIGUAT
     Indication: PRODUCT USED FOR UNKNOWN INDICATION
     Route: 065
  3. COUMADIN [Concomitant]
     Active Substance: WARFARIN SODIUM
  4. REMODULIN [Concomitant]
     Active Substance: TREPROSTINIL
  5. TRACLEER [Suspect]
     Active Substance: BOSENTAN\BOSENTAN MONOHYDRATE
     Indication: PULMONARY HYPERTENSION
     Dosage: UNK
     Route: 048
     Dates: end: 20150414
  6. SILDENAFIL. [Concomitant]
     Active Substance: SILDENAFIL
  7. ADCIRCA [Concomitant]
     Active Substance: TADALAFIL

REACTIONS (11)
  - Syncope [Unknown]
  - Dyspnoea exertional [Recovering/Resolving]
  - Ascites [Unknown]
  - Fatigue [Unknown]
  - Dyspnoea [Unknown]
  - Cough [Unknown]
  - Fluid retention [Unknown]
  - Oedema peripheral [Unknown]
  - Haemoptysis [Unknown]
  - Death [Fatal]
  - Pruritus [Unknown]

NARRATIVE: CASE EVENT DATE: 20140107
